FAERS Safety Report 13996872 (Version 1)
Quarter: 2017Q3

REPORT INFORMATION
  Report Type: Report from Study
  Country: CA (occurrence: CA)
  Receive Date: 20170921
  Receipt Date: 20170921
  Transmission Date: 20171128
  Serious: Yes (Disabling)
  Sender: FDA-Public Use
  Company Number: CA-JNJFOC-20170918498

PATIENT
  Age: 64 Year
  Sex: Male

DRUGS (1)
  1. IMBRUVICA [Suspect]
     Active Substance: IBRUTINIB
     Indication: MARGINAL ZONE LYMPHOMA
     Dosage: STRENGTH = 140 MG
     Route: 048
     Dates: start: 20170911

REACTIONS (3)
  - Product use in unapproved indication [Unknown]
  - Diarrhoea haemorrhagic [Unknown]
  - Off label use [Unknown]

NARRATIVE: CASE EVENT DATE: 20170918
